FAERS Safety Report 19179151 (Version 1)
Quarter: 2021Q2

REPORT INFORMATION
  Report Type: Spontaneous
  Country: IT (occurrence: IT)
  Receive Date: 20210426
  Receipt Date: 20210426
  Transmission Date: 20210717
  Serious: Yes (Other)
  Sender: FDA-Public Use
  Company Number: NVSC2021IT088829

PATIENT
  Age: 45 Year
  Sex: Female

DRUGS (2)
  1. MUSCORIL [Suspect]
     Active Substance: THIOCOLCHICOSIDE
     Indication: NECK PAIN
     Dosage: 4 MG, TOTAL
     Route: 030
     Dates: start: 20210224, end: 20210224
  2. VOLTAREN [Suspect]
     Active Substance: DICLOFENAC SODIUM
     Indication: NECK PAIN
     Dosage: 75 MG TOTAL
     Route: 030
     Dates: start: 20210224, end: 20210224

REACTIONS (1)
  - Loss of consciousness [Recovering/Resolving]

NARRATIVE: CASE EVENT DATE: 20210224
